FAERS Safety Report 25358787 (Version 3)
Quarter: 2025Q2

REPORT INFORMATION
  Report Type: Report from Study
  Country: US (occurrence: US)
  Receive Date: 20250526
  Receipt Date: 20250623
  Transmission Date: 20250717
  Serious: Yes (Hospitalization, Other)
  Sender: MALLINCKRODT
  Company Number: US-MALLINCKRODT-MNK202502984

PATIENT
  Age: 10 Month
  Sex: Female
  Weight: 9 kg

DRUGS (1)
  1. CORTICOTROPIN [Suspect]
     Active Substance: CORTICOTROPIN
     Indication: Infantile spasms
     Route: 030
     Dates: start: 20250512, end: 20250609

REACTIONS (4)
  - Cerebral palsy [Unknown]
  - Seizure [Unknown]
  - Salmonellosis [Unknown]
  - Flushing [Unknown]

NARRATIVE: CASE EVENT DATE: 20250501
